FAERS Safety Report 6385543-6 (Version None)
Quarter: 2009Q4

REPORT INFORMATION
  Report Type: 
  Country: None (occurrence: None)
  Receive Date: 20091002
  Receipt Date: 20080922
  Transmission Date: 20100525
  Serious: No
  Sender: FDA-Public Use
  Company Number: US-ASTRAZENECA-2008UW19735

PATIENT
  Age: 57 Year
  Sex: Female
  Weight: 74.8 kg

DRUGS (5)
  1. ARIMIDEX [Suspect]
     Indication: BREAST CANCER
     Route: 048
  2. CELEBREX [Concomitant]
  3. CALCIUM [Concomitant]
  4. FISH OIL [Concomitant]
  5. ALLERGY MEDICINE [Concomitant]

REACTIONS (8)
  - ARTHRALGIA [None]
  - CHEST DISCOMFORT [None]
  - DEPRESSION [None]
  - HEADACHE [None]
  - HOT FLUSH [None]
  - MUSCULAR WEAKNESS [None]
  - NAUSEA [None]
  - PYREXIA [None]
